FAERS Safety Report 23822994 (Version 2)
Quarter: 2024Q2

REPORT INFORMATION
  Report Type: Report from Study
  Country: US (occurrence: US)
  Receive Date: 20240506
  Receipt Date: 20240525
  Transmission Date: 20240716
  Serious: Yes (Other)
  Sender: FDA-Public Use
  Company Number: US-ABBVIE-5740037

PATIENT
  Sex: Female
  Weight: 102 kg

DRUGS (3)
  1. HUMIRA [Suspect]
     Active Substance: ADALIMUMAB
     Indication: Product used for unknown indication
     Dosage: LAST ADMIN DATE-2023, FORM STRENGTH: 40 MG, CITRATE FREE
     Route: 058
     Dates: start: 20230201
  2. HUMIRA [Suspect]
     Active Substance: ADALIMUMAB
     Dosage: FORM STRENGTH: 40 MG, CITRATE FREE
     Route: 058
     Dates: start: 20230823, end: 20240407
  3. HUMIRA [Suspect]
     Active Substance: ADALIMUMAB
     Dosage: DOUBLE UP DOSE, FORM STRENGTH: 40 MG, CITRATE FREE
     Route: 058
     Dates: start: 2023, end: 2023

REACTIONS (7)
  - Haematoma [Recovered/Resolved]
  - Fall [Unknown]
  - Arthralgia [Recovering/Resolving]
  - Condition aggravated [Unknown]
  - Back pain [Recovering/Resolving]
  - Pain in extremity [Recovering/Resolving]
  - Arthritis [Recovering/Resolving]

NARRATIVE: CASE EVENT DATE: 20230101
